FAERS Safety Report 8342946-8 (Version None)
Quarter: 2012Q2

REPORT INFORMATION
  Report Type: 
  Country: None (occurrence: None)
  Receive Date: 20120504
  Receipt Date: 20120504
  Transmission Date: 20120825
  Serious: Yes (Hospitalization)
  Sender: FDA-Public Use
  Company Number: None

PATIENT
  Age: 54 Year
  Sex: Male
  Weight: 63.8 kg

DRUGS (4)
  1. WARFARIN SODIUM [Suspect]
     Indication: ATRIAL FIBRILLATION
     Dosage: 50 MG QWEEK PO
     Route: 048
     Dates: start: 20120426, end: 20120501
  2. WARFARIN SODIUM [Suspect]
     Indication: SPLENIC VEIN THROMBOSIS
     Dosage: 50 MG QWEEK PO
     Route: 048
     Dates: start: 20120426, end: 20120501
  3. WARFARIN SODIUM [Suspect]
     Indication: DEEP VEIN THROMBOSIS
     Dosage: 50 MG QWEEK PO
     Route: 048
     Dates: start: 20120426, end: 20120501
  4. ASPIRIN [Suspect]
     Dosage: 81 MG EVERY DAY PO
     Dates: start: 20041210

REACTIONS (1)
  - INTERNATIONAL NORMALISED RATIO INCREASED [None]
